FAERS Safety Report 19734011 (Version 1)
Quarter: 2021Q3

REPORT INFORMATION
  Report Type: Spontaneous
  Country: DE (occurrence: DE)
  Receive Date: 20210824
  Receipt Date: 20210824
  Transmission Date: 20211014
  Serious: Yes (Other)
  Sender: FDA-Public Use
  Company Number: DE-AUROBINDO-AUR-APL-2021-035080

PATIENT
  Age: 46 Year
  Sex: Female

DRUGS (2)
  1. TERBINAFINE PUREN 250 MG TABLET [Suspect]
     Active Substance: TERBINAFINE
     Dosage: 0.5 DOSAGE FORM (125 MG), DAILY
     Route: 048
     Dates: start: 20210726, end: 20210801
  2. TERBINAFINE PUREN 250 MG TABLET [Suspect]
     Active Substance: TERBINAFINE
     Indication: ONYCHOMYCOSIS
     Dosage: 1 DOSAGE FORM, DAILY
     Route: 048
     Dates: start: 20210719, end: 20210725

REACTIONS (2)
  - Suicidal ideation [Recovered/Resolved]
  - Depression [Recovered/Resolved]

NARRATIVE: CASE EVENT DATE: 20210720
